FAERS Safety Report 13802032 (Version 1)
Quarter: 2017Q3

REPORT INFORMATION
  Report Type: Spontaneous
  Country: US (occurrence: US)
  Receive Date: 20170727
  Receipt Date: 20170727
  Transmission Date: 20171127
  Serious: Yes (Other)
  Sender: FDA-Public Use
  Company Number: None

PATIENT
  Age: 60 Year
  Sex: Female
  Weight: 71.55 kg

DRUGS (9)
  1. DULOXETINR HCL [Concomitant]
  2. IBANDRONATE SODIUM. [Suspect]
     Active Substance: IBANDRONATE SODIUM
     Indication: OSTEOPOROSIS
     Dosage: ?          QUANTITY:1 CAPSULE(S);?
     Route: 048
     Dates: start: 20170513, end: 20170713
  3. LEVOTHYROXINE SODIUM. [Concomitant]
     Active Substance: LEVOTHYROXINE SODIUM
  4. INVOKAMET [Concomitant]
     Active Substance: CANAGLIFLOZIN\METFORMIN HYDROCHLORIDE
  5. SIMVASTATIN. [Concomitant]
     Active Substance: SIMVASTATIN
  6. JANUVIA [Concomitant]
     Active Substance: SITAGLIPTIN PHOSPHATE
  7. LORATADINE. [Concomitant]
     Active Substance: LORATADINE
  8. TOUJEO [Concomitant]
     Active Substance: INSULIN GLARGINE
  9. ESTROPIPATE. [Concomitant]
     Active Substance: ESTROPIPATE

REACTIONS (7)
  - Fatigue [None]
  - Listless [None]
  - Tremor [None]
  - Asthenia [None]
  - Amnesia [None]
  - Disturbance in attention [None]
  - Dizziness [None]

NARRATIVE: CASE EVENT DATE: 20170715
